FAERS Safety Report 8842618 (Version 2)
Quarter: 2015Q3

REPORT INFORMATION
  Report Type: Report from Study
  Country: US (occurrence: US)
  Receive Date: 20121016
  Receipt Date: 20150828
  Transmission Date: 20151125
  Serious: Yes (Hospitalization, Other)
  Sender: FDA-Public Use
  Company Number: US-ROCHE-1122212

PATIENT
  Age: 10 Year
  Sex: Female

DRUGS (21)
  1. RESPIGAM [Concomitant]
     Active Substance: RESPIRATORY SYNCYTIAL VIRUS IMMUNE GLOBULIN INTRAVENOUS (HUMAN)
     Route: 065
  2. CLARITIN [Concomitant]
     Active Substance: LORATADINE
  3. FLOVENT [Concomitant]
     Active Substance: FLUTICASONE PROPIONATE
  4. HYDROXYCHLOROQUINE [Concomitant]
     Active Substance: HYDROXYCHLOROQUINE
  5. BACTRIM [Concomitant]
     Active Substance: SULFAMETHOXAZOLE\TRIMETHOPRIM
     Dosage: 2 TSP
     Route: 065
  6. SUPRAX (UNITED STATES) [Concomitant]
     Dosage: 1 TEASPOON
     Route: 048
  7. VENTOLIN [Concomitant]
     Active Substance: ALBUTEROL SULFATE
     Route: 055
  8. SULFAMETHOXAZOLE/TRIMETHOPRIM [Concomitant]
     Active Substance: SULFAMETHOXAZOLE\TRIMETHOPRIM
     Dosage: 2 TSP
     Route: 048
  9. AUGMENTIN [Concomitant]
     Active Substance: AMOXICILLIN\CLAVULANATE POTASSIUM
  10. PRELONE [Concomitant]
     Active Substance: PREDNISOLONE
     Dosage: 1 TEASPOON
     Route: 048
  11. SINGULAIR [Concomitant]
     Active Substance: MONTELUKAST SODIUM
  12. NUTROPIN [Suspect]
     Active Substance: SOMATROPIN
     Indication: ENDOCRINE DISORDER
     Route: 065
  13. PROTROPIN [Suspect]
     Active Substance: SOMATREM
     Indication: GROWTH HORMONE DEFICIENCY
     Route: 065
     Dates: start: 1995
  14. PROTROPIN [Suspect]
     Active Substance: SOMATREM
     Route: 065
     Dates: start: 19960311
  15. AMOXICILLIN. [Concomitant]
     Active Substance: AMOXICILLIN
     Route: 065
  16. PRELONE [Concomitant]
     Active Substance: PREDNISOLONE
     Route: 048
  17. ZITHROMAX [Concomitant]
     Active Substance: AZITHROMYCIN DIHYDRATE
     Route: 065
  18. AMOXICILLIN. [Concomitant]
     Active Substance: AMOXICILLIN
     Route: 065
  19. TUMS [Concomitant]
     Active Substance: CALCIUM CARBONATE
     Dosage: DOUBLE STRENGTH
     Route: 065
  20. TUMS [Concomitant]
     Active Substance: CALCIUM CARBONATE
     Route: 065
  21. PREDNISONE. [Concomitant]
     Active Substance: PREDNISONE

REACTIONS (36)
  - Body height decreased [Unknown]
  - Skin discolouration [Unknown]
  - Kabuki make-up syndrome [Unknown]
  - Rhinorrhoea [Unknown]
  - Clubbing [Unknown]
  - Wheezing [Unknown]
  - Large intestine perforation [Recovered/Resolved]
  - Haemosiderosis [Unknown]
  - Asthenia [Unknown]
  - Lung infection [Unknown]
  - Eyelid ptosis [Unknown]
  - Abdominal mass [Unknown]
  - Scab [Unknown]
  - Splenomegaly [Unknown]
  - Respiratory disorder [Unknown]
  - Headache [Unknown]
  - Pulmonary alveolar haemorrhage [Unknown]
  - Oxygen saturation decreased [Unknown]
  - Malaise [Unknown]
  - Osteoporosis [Unknown]
  - Cystitis [Unknown]
  - Spinal compression fracture [Unknown]
  - Growth retardation [Recovering/Resolving]
  - Sinusitis [Unknown]
  - Hyperglycaemia [Unknown]
  - Haemoptysis [Unknown]
  - Nocturia [Unknown]
  - Diarrhoea [Unknown]
  - Fat tissue increased [Unknown]
  - Heart rate increased [Unknown]
  - Back pain [Unknown]
  - Breath sounds abnormal [Unknown]
  - High arched palate [Unknown]
  - Acute respiratory failure [Unknown]
  - Hyperhidrosis [Unknown]
  - Drug dose omission [Unknown]

NARRATIVE: CASE EVENT DATE: 199705
